FAERS Safety Report 7397927-8 (Version None)
Quarter: 2011Q2

REPORT INFORMATION
  Report Type: 
  Country: None (occurrence: None)
  Receive Date: 20110406
  Receipt Date: 20110401
  Transmission Date: 20111010
  Serious: Yes (Other)
  Sender: FDA-Public Use
  Company Number: AU-ABBOTT-11P-008-0715902-00

PATIENT
  Sex: Male

DRUGS (1)
  1. LUCRIN [Suspect]
     Indication: PROSTATE CANCER

REACTIONS (6)
  - DIZZINESS [None]
  - INJECTED LIMB MOBILITY DECREASED [None]
  - VOMITING [None]
  - INJECTION SITE PAIN [None]
  - HYPERHIDROSIS [None]
  - FATIGUE [None]
